FAERS Safety Report 8053033-0 (Version None)
Quarter: 2012Q1

REPORT INFORMATION
  Report Type: 
  Country: None (occurrence: None)
  Receive Date: 20120118
  Receipt Date: 20120116
  Transmission Date: 20120608
  Serious: Yes (Hospitalization)
  Sender: FDA-Public Use
  Company Number: IT-ROXANE LABORATORIES, INC.-2012-RO-00479RO

PATIENT
  Age: 32 Year
  Sex: Female

DRUGS (3)
  1. INFLIXIMAB [Suspect]
     Indication: CROHN'S DISEASE
  2. AZATHIOPRINE [Suspect]
     Indication: CROHN'S DISEASE
  3. PREDNISONE TAB [Suspect]
     Indication: CROHN'S DISEASE

REACTIONS (4)
  - PNEUMONIA CYTOMEGALOVIRAL [None]
  - HISTIOCYTOSIS HAEMATOPHAGIC [None]
  - PANCYTOPENIA [None]
  - SPLEEN PALPABLE [None]
